FAERS Safety Report 14969163 (Version 1)
Quarter: 2018Q2

REPORT INFORMATION
  Report Type: Spontaneous
  Country: US (occurrence: US)
  Receive Date: 20180511
  Receipt Date: 20180511
  Transmission Date: 20180711
  Serious: Yes (Hospitalization)
  Sender: FDA-Public Use
  Company Number: None

PATIENT
  Age: 71 Year
  Sex: Male
  Weight: 83.25 kg

DRUGS (9)
  1. LOSARTAN. [Concomitant]
     Active Substance: LOSARTAN
  2. VICTOZA [Suspect]
     Active Substance: LIRAGLUTIDE
     Indication: TYPE 2 DIABETES MELLITUS
     Dosage: ?          QUANTITY:1 DF DOSAGE FORM;?
     Route: 058
     Dates: start: 20150916, end: 20180331
  3. METOPROLOL. [Concomitant]
     Active Substance: METOPROLOL
  4. LEVEMIR [Concomitant]
     Active Substance: INSULIN DETEMIR
  5. FENOFIBRATE. [Concomitant]
     Active Substance: FENOFIBRATE
  6. METFORMIN [Concomitant]
     Active Substance: METFORMIN HYDROCHLORIDE
  7. ATORVASTATIN [Concomitant]
     Active Substance: ATORVASTATIN
  8. VITAMIN D [Concomitant]
     Active Substance: CHOLECALCIFEROL
  9. AMOLODIPINE [Concomitant]

REACTIONS (9)
  - Sepsis [None]
  - Pyrexia [None]
  - Blood glucose decreased [None]
  - Diarrhoea [None]
  - Cholelithiasis [None]
  - Loss of consciousness [None]
  - Gallbladder disorder [None]
  - Gastrooesophageal reflux disease [None]
  - Vomiting [None]

NARRATIVE: CASE EVENT DATE: 20180331
